FAERS Safety Report 4652248-9 (Version None)
Quarter: 2005Q2

REPORT INFORMATION
  Report Type: 
  Country: None (occurrence: None)
  Receive Date: 20050502
  Receipt Date: 20050420
  Transmission Date: 20051028
  Serious: Yes (Hospitalization, Other)
  Sender: FDA-Public Use
  Company Number: 2005063186

PATIENT
  Age: 61 Year
  Sex: Female

DRUGS (5)
  1. ZOLOFT [Suspect]
     Indication: AFFECTIVE DISORDER
     Dosage: 50 MG (50 MG, 1 IN 1 D), ORAL
     Route: 048
     Dates: end: 20050401
  2. PAROXETINE HCL [Suspect]
     Indication: AFFECTIVE DISORDER
     Dosage: 1 IN 1 D, ORAL
     Route: 048
     Dates: end: 20050201
  3. THEOPHYLLINE [Concomitant]
  4. GLIMEPIRIDE [Concomitant]
  5. PROGESTERONE [Concomitant]

REACTIONS (2)
  - DIARRHOEA [None]
  - SOMNOLENCE [None]
